FAERS Safety Report 13182968 (Version 1)
Quarter: 2017Q1

REPORT INFORMATION
  Report Type: Spontaneous
  Country: JP (occurrence: JP)
  Receive Date: 20170203
  Receipt Date: 20170203
  Transmission Date: 20170428
  Serious: Yes (Hospitalization)
  Sender: FDA-Public Use
  Company Number: JP-PFIZER INC-2017045608

PATIENT
  Age: 7 Decade
  Sex: Female
  Weight: 55 kg

DRUGS (14)
  1. PREGABALIN. [Suspect]
     Active Substance: PREGABALIN
     Indication: SPINAL PAIN
     Dosage: 50 MG, DAILY (25  MG, 2X/DAY AFTER BREAKFAST AND DINNER)
     Route: 048
  2. OMEPRAZOLE. [Concomitant]
     Active Substance: OMEPRAZOLE
  3. BERAPROST [Concomitant]
     Active Substance: BERAPROST
  4. BETAMETHASONE. [Concomitant]
     Active Substance: BETAMETHASONE
  5. LOSARTAN. [Concomitant]
     Active Substance: LOSARTAN
  6. CARVEDILOL. [Concomitant]
     Active Substance: CARVEDILOL
  7. PRAMIPEXOLE. [Suspect]
     Active Substance: PRAMIPEXOLE
     Indication: SPINAL PAIN
     Dosage: 0.125 MG, 1X/DAY (BEFORE BEDTIME)
  8. ALENDRONATE [Concomitant]
     Active Substance: ALENDRONATE SODIUM
  9. MIZORIBINE [Concomitant]
     Active Substance: MIZORIBINE
  10. THEOPHYLLINE [Concomitant]
     Active Substance: THEOPHYLLINE ANHYDROUS
  11. BAYASPIRIN [Concomitant]
     Active Substance: ASPIRIN
     Route: 048
  12. MONTELUKAST [Concomitant]
     Active Substance: MONTELUKAST SODIUM
  13. SALMETEROL/FLUTICASONE INHALATIONS [Concomitant]
     Route: 055
  14. DILTIAZEM. [Concomitant]
     Active Substance: DILTIAZEM

REACTIONS (4)
  - Road traffic accident [Unknown]
  - Pneumothorax traumatic [Recovering/Resolving]
  - Somnolence [Unknown]
  - Rib fracture [Recovering/Resolving]
